FAERS Safety Report 5510493-4 (Version None)
Quarter: 2007Q4

REPORT INFORMATION
  Report Type: 
  Country: None (occurrence: None)
  Receive Date: 20071030
  Receipt Date: 20070813
  Transmission Date: 20080405
  Serious: Yes (Other)
  Sender: FDA-Public Use
  Company Number: HQWYE533814AUG07

PATIENT
  Age: 75 Year
  Sex: Female

DRUGS (5)
  1. PREMARIN [Suspect]
     Indication: HORMONE REPLACEMENT THERAPY
     Dosage: 0.625 MG, ORAL
     Route: 048
     Dates: start: 20020101
  2. PRAVASTIN (PRAVASTIN) [Concomitant]
  3. PRILOSEC [Concomitant]
  4. BENICAR [Concomitant]
  5. SINGULAIR [Concomitant]

REACTIONS (1)
  - CEREBROVASCULAR ACCIDENT [None]
